FAERS Safety Report 23470027 (Version 1)
Quarter: 2024Q1

REPORT INFORMATION
  Report Type: Spontaneous
  Country: CH (occurrence: CH)
  Receive Date: 20240202
  Receipt Date: 20240202
  Transmission Date: 20240410
  Serious: Yes (Hospitalization)
  Sender: FDA-Public Use
  Company Number: None

PATIENT
  Age: 86 Year
  Sex: Male

DRUGS (7)
  1. CLONAZEPAM [Suspect]
     Active Substance: CLONAZEPAM
     Dosage: ONE-TIME INTAKE IN ACCIDENTAL OVERDOSE; HALF A?BOTTLE OF RIVOTRIL
     Route: 048
     Dates: start: 20240108, end: 20240108
  2. XARELTO [Concomitant]
     Active Substance: RIVAROXABAN
     Dosage: CHRONIC THERAPY?DAILY DOSE: 15 MILLIGRAM
     Route: 048
  3. AMIODARONE [Concomitant]
     Active Substance: AMIODARONE
     Dosage: CHRONIC THERAPY?DAILY DOSE: 100 MILLIGRAM
     Route: 048
  4. ATORVASTATIN CALCIUM\EZETIMIBE [Concomitant]
     Active Substance: ATORVASTATIN CALCIUM\EZETIMIBE
     Dosage: CHRONIC THERAPY
     Route: 048
  5. PANTOZOL [Concomitant]
     Active Substance: PANTOPRAZOLE SODIUM
     Dosage: CHRONIC THERAPY?DAILY DOSE: 40 MILLIGRAM
     Route: 048
  6. QUETIAPIN SPIRIG HC [Concomitant]
     Dosage: CHRONIC THERAPY?DAILY DOSE: 12.5 MILLIGRAM
     Route: 048
  7. RANEXA [Concomitant]
     Active Substance: RANOLAZINE
     Dosage: CHRONIC THERAPY?DAILY DOSE: 375 MILLIGRAM
     Route: 048

REACTIONS (4)
  - Toxicity to various agents [Recovered/Resolved]
  - Accidental overdose [Recovered/Resolved]
  - Sopor [Recovered/Resolved]
  - Unresponsive to stimuli [Recovered/Resolved]

NARRATIVE: CASE EVENT DATE: 20240108
